FAERS Safety Report 19372505 (Version 3)
Quarter: 2021Q3

REPORT INFORMATION
  Report Type: Report from Study
  Country: NZ (occurrence: NZ)
  Receive Date: 20210604
  Receipt Date: 20210720
  Transmission Date: 20211014
  Serious: Yes (Hospitalization)
  Sender: FDA-Public Use
  Company Number: NZ-ROCHE-2826189

PATIENT
  Age: 47 Year
  Sex: Female
  Weight: 49.1 kg

DRUGS (22)
  1. METOCLOPRAMIDE. [Concomitant]
     Active Substance: METOCLOPRAMIDE
     Indication: VOMITING
     Route: 042
     Dates: start: 20210429, end: 20210429
  2. HYOSCINE BUTYLBROMIDE [Concomitant]
     Active Substance: BUTYLSCOPOLAMINE BROMIDE
     Indication: ABDOMINAL PAIN
     Route: 048
     Dates: start: 20210404
  3. SEVREDOL [Concomitant]
     Active Substance: MORPHINE
     Indication: PAIN
     Route: 048
     Dates: start: 202101
  4. MORPHINE [Concomitant]
     Active Substance: MORPHINE
     Route: 042
     Dates: start: 20210429, end: 20210429
  5. ATEZOLIZUMAB. [Suspect]
     Active Substance: ATEZOLIZUMAB
     Indication: HEPATOCELLULAR CARCINOMA
     Dosage: MOST RECENT DOSE 1200 MG OF PRIOR TO AE (ADVERSE EVENT): 14/APR/2021
     Route: 041
     Dates: start: 20210323
  6. DOCUSATE;SENNA [Concomitant]
     Active Substance: DOCUSATE\SENNOSIDES
     Indication: CONSTIPATION
     Route: 048
     Dates: start: 202101
  7. SODIUM CHLORIDE IV [Concomitant]
     Active Substance: SODIUM CHLORIDE
     Indication: DEHYDRATION
     Route: 042
     Dates: start: 20210429, end: 20210429
  8. SODIUM CHLORIDE IV [Concomitant]
     Active Substance: SODIUM CHLORIDE
     Route: 042
     Dates: start: 20210430, end: 20210430
  9. ONDANSETRON [Concomitant]
     Active Substance: ONDANSETRON
     Route: 042
     Dates: start: 20210429, end: 20210429
  10. M?ESLON [Concomitant]
     Active Substance: MORPHINE SULFATE
     Indication: ABDOMINAL PAIN
     Route: 048
     Dates: start: 202101
  11. OMEPRAZOLE. [Concomitant]
     Active Substance: OMEPRAZOLE
     Indication: GASTROOESOPHAGEAL REFLUX DISEASE
     Dates: start: 2019
  12. ZOPICLONE [Concomitant]
     Active Substance: ZOPICLONE
     Indication: INSOMNIA
     Route: 048
     Dates: start: 20210330
  13. M?ESLON [Concomitant]
     Active Substance: MORPHINE SULFATE
     Route: 042
     Dates: start: 20210429, end: 20210430
  14. CHOLECALCIFEROL [Concomitant]
     Active Substance: CHOLECALCIFEROL
     Dates: start: 202103
  15. ONDANSETRON [Concomitant]
     Active Substance: ONDANSETRON
     Indication: NAUSEA
     Route: 048
     Dates: start: 202103
  16. ZYRTEC (NEW ZEALAND) [Concomitant]
     Dates: start: 202101
  17. MORPHINE [Concomitant]
     Active Substance: MORPHINE
     Indication: ABDOMINAL PAIN
     Dosage: AS NEEDED
     Route: 042
     Dates: start: 20210429, end: 20210429
  18. CYCLIZINE [Concomitant]
     Active Substance: CYCLIZINE
     Route: 042
     Dates: start: 20210429, end: 20210429
  19. BEVACIZUMAB. [Suspect]
     Active Substance: BEVACIZUMAB
     Indication: HEPATOCELLULAR CARCINOMA
     Dosage: MOST RECENT DOSE 785 MG OF BEVACIZUMAB PRIOR TO AE: 14/APR/2021
     Route: 042
     Dates: start: 20210323
  20. TOCILIZUMAB. [Suspect]
     Active Substance: TOCILIZUMAB
     Indication: HEPATOCELLULAR CARCINOMA
     Dosage: MOST RECENT DOSE 393 MG OF TOCILIZUMAB PRIOR TO AE: 14/APR/2021
     Route: 042
     Dates: start: 20210323
  21. METOCLOPRAMIDE. [Concomitant]
     Active Substance: METOCLOPRAMIDE
     Indication: NAUSEA
     Route: 042
     Dates: start: 202103, end: 20210414
  22. VENTOLIN [Concomitant]
     Active Substance: ALBUTEROL SULFATE
     Indication: ASTHMA
     Dosage: 100 UG AS NEEDED
     Route: 055

REACTIONS (4)
  - Abdominal pain upper [Recovered/Resolved]
  - Vomiting [Recovered/Resolved]
  - Nausea [Recovered/Resolved]
  - Abdominal pain [Recovered/Resolved]

NARRATIVE: CASE EVENT DATE: 20210427
